FAERS Safety Report 4873661-0 (Version None)
Quarter: 2006Q1

REPORT INFORMATION
  Report Type: 
  Country: None (occurrence: None)
  Receive Date: 20060103
  Receipt Date: 20060103
  Transmission Date: 20060701
  Serious: Yes (Other)
  Sender: FDA-Public Use
  Company Number: None

PATIENT
  Sex: Female

DRUGS (2)
  1. ATENOLOL [Suspect]
     Indication: MIGRAINE
     Dosage: 50MG  DAILY  PO
     Route: 048
     Dates: start: 20051207, end: 20051230
  2. ATENOLOL [Suspect]
     Indication: PALPITATIONS

REACTIONS (4)
  - DISEASE RECURRENCE [None]
  - MIGRAINE [None]
  - PALPITATIONS [None]
  - PHARMACEUTICAL PRODUCT COMPLAINT [None]
